FAERS Safety Report 16732248 (Version 4)
Quarter: 2025Q4

REPORT INFORMATION
  Report Type: Spontaneous
  Country: EU (occurrence: EU)
  Receive Date: 20190822
  Receipt Date: 20251106
  Transmission Date: 20260117
  Serious: Yes (Other)
  Sender: NOVARTIS
  Company Number: PHHY2019PL180566

PATIENT
  Age: 34 Year
  Sex: Female

DRUGS (6)
  1. MYCOPHENOLATE MOFETIL [Suspect]
     Active Substance: MYCOPHENOLATE MOFETIL
     Indication: Immunosuppressant drug therapy
     Dosage: UNK
     Route: 065
     Dates: start: 2008, end: 200812
  2. MYCOPHENOLATE MOFETIL [Suspect]
     Active Substance: MYCOPHENOLATE MOFETIL
     Indication: Renal transplant
     Dosage: 1 G, Q24H (MMF (MYCOPHENOLATE MOFETIL) DOSE WAS REDUCED TO 1 G/24 HOUR)
     Route: 065
     Dates: start: 200812
  3. CYCLOSPORINE [Suspect]
     Active Substance: CYCLOSPORINE
     Indication: Immunosuppressant drug therapy
     Dosage: UNK
     Route: 065
  4. TACROLIMUS [Suspect]
     Active Substance: TACROLIMUS
     Indication: Renal transplant
     Dosage: UNK NG/DL, UNK
     Route: 065
     Dates: start: 2008
  5. TACROLIMUS [Suspect]
     Active Substance: TACROLIMUS
     Indication: Immunosuppressant drug therapy
  6. IMURAN [Suspect]
     Active Substance: AZATHIOPRINE
     Indication: Immunosuppressant drug therapy
     Dosage: UNK
     Route: 065
     Dates: start: 2008

REACTIONS (4)
  - Parvovirus B19 infection [Recovered/Resolved]
  - Urinary tract infection [Unknown]
  - Aplasia pure red cell [Recovered/Resolved]
  - Normocytic anaemia [Unknown]

NARRATIVE: CASE EVENT DATE: 20081201
